FAERS Safety Report 9591532 (Version 1)
Quarter: 2013Q4

REPORT INFORMATION
  Report Type: Spontaneous
  Country: US (occurrence: US)
  Receive Date: 20131003
  Receipt Date: 20131003
  Transmission Date: 20140711
  Serious: No
  Sender: FDA-Public Use
  Company Number: US-AMGEN-USASP2012082532

PATIENT
  Sex: Male
  Weight: 52.61 kg

DRUGS (9)
  1. ENBREL [Suspect]
     Indication: JUVENILE IDIOPATHIC ARTHRITIS
     Dosage: 50 MG, QWK
     Route: 058
  2. TAMIFLU [Concomitant]
     Dosage: 30 MG, UNK
  3. VOLTAREN                           /00372301/ [Concomitant]
     Dosage: 75 MG EC, UNK
  4. PREDNISONE [Concomitant]
     Dosage: 10 MG, UNK
  5. HUMIRA [Concomitant]
     Dosage: 40MG/ 0.8
  6. SULFASALAZIN [Concomitant]
     Dosage: 500 MG, UNK
  7. FOLIC ACID [Concomitant]
     Dosage: UNK
  8. METHOTREXATE [Concomitant]
     Dosage: 25 MG, UNK
  9. MULTIVITAMINS, PLAIN [Concomitant]

REACTIONS (2)
  - Drug ineffective [Unknown]
  - Influenza [Not Recovered/Not Resolved]
